FAERS Safety Report 8580051-6 (Version None)
Quarter: 2012Q3

REPORT INFORMATION
  Report Type: 
  Country: None (occurrence: None)
  Receive Date: 20120808
  Receipt Date: 20120730
  Transmission Date: 20120928
  Serious: Yes (Hospitalization, Other)
  Sender: FDA-Public Use
  Company Number: US-ABBOTT-12P-163-0929071-00

PATIENT
  Age: 64 Year
  Sex: Female

DRUGS (14)
  1. BIOFILM [Concomitant]
     Indication: STEROID THERAPY
  2. LOPID [Concomitant]
     Indication: PRODUCT USED FOR UNKNOWN INDICATION
     Dosage: 2 PILLS PER DAY 1/2 HOUR BEFORE MEALS
  3. PRILOSEC [Concomitant]
     Indication: PRODUCT USED FOR UNKNOWN INDICATION
     Dosage: PILL
  4. SERTRALINE HYDROCHLORIDE [Concomitant]
     Indication: DEPRESSION
     Dosage: 100 MG DAILY
  5. BIOFILM [Concomitant]
     Indication: SUPPLEMENTATION THERAPY
  6. BIOFILM [Concomitant]
     Indication: ALOPECIA
  7. HUMIRA [Suspect]
     Dates: end: 20120523
  8. OXYCODONE HCL [Concomitant]
     Indication: PAIN
     Dosage: 5/325 MG
  9. FENTANYL [Concomitant]
     Indication: PRODUCT USED FOR UNKNOWN INDICATION
  10. HUMIRA [Suspect]
     Indication: CROHN'S DISEASE
     Dosage: LOADING DOSE
     Dates: start: 20120411, end: 20120411
  11. ALIGN [Concomitant]
     Indication: PRODUCT USED FOR UNKNOWN INDICATION
     Dosage: PILL
  12. TRAZODONE HYDROCHLORIDE [Concomitant]
     Indication: DEPRESSION
     Dosage: 50 MG DAILY
  13. ONDANSETRON [Concomitant]
     Indication: NAUSEA
  14. ZOLOFT [Concomitant]
     Indication: DEPRESSION
     Dosage: 75MG DAILY

REACTIONS (13)
  - NEOPLASM MALIGNANT [None]
  - OROPHARYNGEAL PAIN [None]
  - LYMPHOMA [None]
  - MALAISE [None]
  - WEIGHT DECREASED [None]
  - PAIN [None]
  - FISTULA [None]
  - ABDOMINAL PAIN [None]
  - DEPRESSION [None]
  - AORTIC ANEURYSM RUPTURE [None]
  - LYMPH NODES SCAN ABNORMAL [None]
  - HAEMORRHAGE [None]
  - ALOPECIA [None]
